FAERS Safety Report 7644808-8 (Version None)
Quarter: 2011Q3

REPORT INFORMATION
  Report Type: 
  Country: None (occurrence: None)
  Receive Date: 20110725
  Receipt Date: 20110707
  Transmission Date: 20111222
  Serious: Yes (Other)
  Sender: FDA-Public Use
  Company Number: 2011MA008592

PATIENT
  Sex: Female

DRUGS (2)
  1. NIMESULIDE (NIMESULIDE) [Suspect]
     Indication: PRODUCT USED FOR UNKNOWN INDICATION
  2. IBUPROFEN [Suspect]

REACTIONS (2)
  - TRANSAMINASES INCREASED [None]
  - BLOOD BILIRUBIN ABNORMAL [None]
